FAERS Safety Report 13205056 (Version 1)
Quarter: 2017Q1

REPORT INFORMATION
  Report Type: Spontaneous
  Country: US (occurrence: US)
  Receive Date: 20170207
  Receipt Date: 20170207
  Transmission Date: 20170428
  Serious: No
  Sender: FDA-Public Use
  Company Number: None

PATIENT
  Age: 48 Year
  Sex: Male
  Weight: 77.18 kg

DRUGS (7)
  1. DEGREE [Suspect]
     Active Substance: COSMETICS
     Indication: PRODUCT USED FOR UNKNOWN INDICATION
  2. AMLODIPINE [Concomitant]
     Active Substance: AMLODIPINE BESYLATE
  3. SIMVASTATIN. [Concomitant]
     Active Substance: SIMVASTATIN
  4. LUXIQ [Suspect]
     Active Substance: BETAMETHASONE VALERATE
     Indication: DRY SKIN
     Dates: start: 20130103, end: 20170205
  5. LOTEMAX [Suspect]
     Active Substance: LOTEPREDNOL ETABONATE
     Indication: SURGERY
  6. OLD SPICE CLASSIC ORIGINAL SCENT [Suspect]
     Active Substance: ALUMINUM ZIRCONIUM TRICHLOROHYDREX GLY
     Indication: PRODUCT USED FOR UNKNOWN INDICATION
  7. LISINOPRIL. [Concomitant]
     Active Substance: LISINOPRIL

REACTIONS (8)
  - Burning sensation [None]
  - Feeling abnormal [None]
  - Headache [None]
  - Eye pain [None]
  - Rhinorrhoea [None]
  - Lacrimation increased [None]
  - Hypersensitivity [None]
  - Reaction to drug excipients [None]

NARRATIVE: CASE EVENT DATE: 20170121
